FAERS Safety Report 6650409-0 (Version None)
Quarter: 2010Q1

REPORT INFORMATION
  Report Type: 
  Country: None (occurrence: None)
  Receive Date: 20100322
  Receipt Date: 20100312
  Transmission Date: 20100710
  Serious: Yes (Hospitalization)
  Sender: FDA-Public Use
  Company Number: 535614

PATIENT
  Age: 42 Year
  Sex: Male

DRUGS (7)
  1. METHOTREXATE [Suspect]
     Dosage: 15 G, INTRAVENOUS
     Route: 042
     Dates: start: 20100301
  2. ACYCLOVIR SODIUM [Concomitant]
  3. (KALETRA /01506501/) [Concomitant]
  4. KEPPRA [Concomitant]
  5. FOSCAVIR [Concomitant]
  6. (SERENASE /01100901/) [Concomitant]
  7. (ELOPRAM /00582601/) [Concomitant]

REACTIONS (2)
  - ESCHERICHIA INFECTION [None]
  - OPPORTUNISTIC INFECTION [None]
